FAERS Safety Report 4728838-1 (Version None)
Quarter: 2005Q3

REPORT INFORMATION
  Report Type: 
  Country: None (occurrence: None)
  Receive Date: 20050729
  Receipt Date: 20050610
  Transmission Date: 20060218
  Serious: Yes (Hospitalization)
  Sender: FDA-Public Use
  Company Number: US-ROCHE-407562

PATIENT
  Age: 78 Year
  Sex: Female
  Weight: 71.2 kg

DRUGS (4)
  1. BONIVA [Suspect]
     Indication: OSTEOPOROSIS
     Route: 048
     Dates: start: 20050505, end: 20050601
  2. CELEBREX [Concomitant]
     Dosage: LONGSTANDING TREATMENT.
     Route: 048
  3. ACIPHEX [Concomitant]
  4. MAXZIDE [Concomitant]
     Dosage: LONGSTANDING TREATMENT.

REACTIONS (5)
  - ELECTROLYTE IMBALANCE [None]
  - GASTROOESOPHAGEAL REFLUX DISEASE [None]
  - NAUSEA [None]
  - THERAPY NON-RESPONDER [None]
  - VOMITING [None]
